FAERS Safety Report 16262517 (Version 1)
Quarter: 2019Q2

REPORT INFORMATION
  Report Type: Spontaneous
  Country: US (occurrence: US)
  Receive Date: 20190501
  Receipt Date: 20190501
  Transmission Date: 20190711
  Serious: Yes (Other)
  Sender: FDA-Public Use
  Company Number: US-AMGEN-USASP2019065270

PATIENT
  Age: 92 Year
  Sex: Female

DRUGS (4)
  1. NPLATE [Suspect]
     Active Substance: ROMIPLOSTIM
     Dosage: 4 MICROGRAM, QWK
     Route: 065
     Dates: start: 20190423
  2. NPLATE [Suspect]
     Active Substance: ROMIPLOSTIM
     Indication: PRODUCT USED FOR UNKNOWN INDICATION
     Dosage: UNK
     Route: 065
     Dates: start: 2008
  3. NPLATE [Suspect]
     Active Substance: ROMIPLOSTIM
     Dosage: 1 MICROGRAM, QWK
     Route: 065
     Dates: start: 2019
  4. NPLATE [Suspect]
     Active Substance: ROMIPLOSTIM
     Dosage: 2 TO 3 MICROGRAM, QWK
     Route: 065
     Dates: start: 201904

REACTIONS (1)
  - Thrombocytopenia [Unknown]
